FAERS Safety Report 25588895 (Version 1)
Quarter: 2025Q3

REPORT INFORMATION
  Report Type: Spontaneous
  Country: KR (occurrence: KR)
  Receive Date: 20250722
  Receipt Date: 20250722
  Transmission Date: 20251021
  Serious: Yes (Death, Life-Threatening, Other)
  Sender: AMGEN
  Company Number: KR-AMGEN-KORSP2025141727

PATIENT

DRUGS (3)
  1. CARFILZOMIB [Suspect]
     Active Substance: CARFILZOMIB
     Indication: Plasma cell myeloma refractory
     Route: 065
  2. LENALIDOMIDE [Suspect]
     Active Substance: LENALIDOMIDE
     Indication: Plasma cell myeloma refractory
     Route: 065
  3. DEXAMETHASONE [Suspect]
     Active Substance: DEXAMETHASONE
     Indication: Plasma cell myeloma refractory
     Route: 065

REACTIONS (32)
  - Death [Fatal]
  - Infection [Unknown]
  - Liver disorder [Unknown]
  - Neutropenia [Unknown]
  - Anaemia [Unknown]
  - Thrombocytopenia [Unknown]
  - Pyrexia [Unknown]
  - Asthenia [Unknown]
  - Diarrhoea [Unknown]
  - Constipation [Unknown]
  - Neuropathy peripheral [Unknown]
  - Pain [Unknown]
  - Rash [Unknown]
  - Dyspnoea [Unknown]
  - Dizziness [Unknown]
  - Cardiac failure [Unknown]
  - Nausea [Unknown]
  - Renal failure [Unknown]
  - Embolism [Unknown]
  - Plasma cell myeloma [Unknown]
  - Cardiac disorder [Unknown]
  - Abdominal discomfort [Unknown]
  - Adverse event [Unknown]
  - Stomatitis [Unknown]
  - Therapy partial responder [Unknown]
  - Therapeutic product effect incomplete [Unknown]
  - Dyspnoea [Unknown]
  - Dyspepsia [Unknown]
  - Anxiety [Unknown]
  - Insomnia [Unknown]
  - Dyspepsia [Unknown]
  - Vomiting [Unknown]
